FAERS Safety Report 7252153-8 (Version None)
Quarter: 2011Q1

REPORT INFORMATION
  Report Type: 
  Country: None (occurrence: None)
  Receive Date: 20110128
  Receipt Date: 20100403
  Transmission Date: 20110831
  Serious: No
  Sender: FDA-Public Use
  Company Number: US-ABBOTT-10P-163-0636285-00

PATIENT
  Sex: Female
  Weight: 47.67 kg

DRUGS (1)
  1. HUMIRA [Suspect]
     Indication: RHEUMATOID ARTHRITIS
     Dates: start: 20090405

REACTIONS (7)
  - INFLUENZA LIKE ILLNESS [None]
  - HEADACHE [None]
  - RASH PAPULAR [None]
  - GRANULOMA [None]
  - PAIN [None]
  - FEELING HOT [None]
  - VOMITING [None]
